FAERS Safety Report 12765698 (Version 1)
Quarter: 2016Q3

REPORT INFORMATION
  Report Type: Spontaneous
  Country: US (occurrence: US)
  Receive Date: 20160915
  Receipt Date: 20160915
  Transmission Date: 20161109
  Serious: No
  Sender: FDA-Public Use
  Company Number: None

PATIENT
  Sex: Female

DRUGS (1)
  1. NEXAVAR [Suspect]
     Active Substance: SORAFENIB
     Route: 048
     Dates: start: 20160701

REACTIONS (5)
  - Hyperkeratosis [None]
  - Blister [None]
  - Dry skin [None]
  - Pruritus [None]
  - Therapy cessation [None]
